FAERS Safety Report 8799932 (Version 1)
Quarter: 2012Q4

REPORT INFORMATION
  Report Type: Spontaneous
  Country: JP (occurrence: None)
  Receive Date: 20120917
  Receipt Date: 20120917
  Transmission Date: 20130627
  Serious: Yes (Other)
  Sender: FDA-Public Use
  Company Number: JP-2012-16246

PATIENT

DRUGS (4)
  1. SAMSCA [Suspect]
     Route: 048
     Dates: start: 201208
  2. LASIX (FUROSEMIDE) [Concomitant]
  3. ALDACTONE A (SPIRONOLACTONE) [Concomitant]
  4. FLUITRAN (TRICHLORMETHIAZIDE) TABLET [Concomitant]

REACTIONS (2)
  - Hyponatraemia [None]
  - Renal impairment [None]
